FAERS Safety Report 7523526-0 (Version None)
Quarter: 2011Q2

REPORT INFORMATION
  Report Type: 
  Country: None (occurrence: None)
  Receive Date: 20110525
  Receipt Date: 20110510
  Transmission Date: 20111010
  Serious: Yes (Hospitalization)
  Sender: FDA-Public Use
  Company Number: 2011MA005739

PATIENT
  Age: 76 Year
  Sex: Female

DRUGS (5)
  1. MIANSERIN [Concomitant]
  2. PHENOBARBITAL TAB [Concomitant]
  3. AMANTADINE HCL [Concomitant]
  4. CARBAMAZEPINE [Suspect]
     Indication: EPILEPSY
  5. CITALOPRAM HYDROBROMIDE [Concomitant]

REACTIONS (6)
  - CONFUSIONAL STATE [None]
  - FALL [None]
  - CONVULSION [None]
  - IDIOPATHIC GENERALISED EPILEPSY [None]
  - MYOCLONUS [None]
  - CONDITION AGGRAVATED [None]
